FAERS Safety Report 5814428-6 (Version None)
Quarter: 2008Q3

REPORT INFORMATION
  Report Type: 
  Country: None (occurrence: None)
  Receive Date: 20080718
  Receipt Date: 20080708
  Transmission Date: 20090109
  Serious: Yes (Other)
  Sender: FDA-Public Use
  Company Number: PHEH2008US06081

PATIENT
  Sex: Female

DRUGS (1)
  1. AMLODIPINE BESYLATE AND BENAZEPRIL HCL [Suspect]

REACTIONS (11)
  - ANXIETY [None]
  - ASTHENIA [None]
  - CONDITION AGGRAVATED [None]
  - CONJUNCTIVAL HAEMORRHAGE [None]
  - DEPRESSION [None]
  - EPISTAXIS [None]
  - EYE INJURY [None]
  - EYELID DISORDER [None]
  - HAEMORRHAGE [None]
  - MALAISE [None]
  - NAUSEA [None]
